FAERS Safety Report 13182552 (Version 1)
Quarter: 2017Q1

REPORT INFORMATION
  Report Type: Spontaneous
  Country: HR (occurrence: HR)
  Receive Date: 20170202
  Receipt Date: 20170202
  Transmission Date: 20170428
  Serious: Yes (Hospitalization)
  Sender: FDA-Public Use
  Company Number: HR-ROCHE-1888159

PATIENT
  Age: 49 Year
  Sex: Female

DRUGS (2)
  1. RIVOTRIL [Suspect]
     Active Substance: CLONAZEPAM
     Indication: PRODUCT USED FOR UNKNOWN INDICATION
     Route: 048
     Dates: start: 20161211
  2. CERSON (CROATIA) [Suspect]
     Active Substance: NITRAZEPAM
     Indication: PRODUCT USED FOR UNKNOWN INDICATION
     Route: 048
     Dates: start: 20161211

REACTIONS (3)
  - Suicide attempt [Unknown]
  - Intentional overdose [Unknown]
  - Somnolence [Unknown]

NARRATIVE: CASE EVENT DATE: 20161211
